FAERS Safety Report 8358232-6 (Version None)
Quarter: 2012Q2

REPORT INFORMATION
  Report Type: 
  Country: None (occurrence: None)
  Receive Date: 20120514
  Receipt Date: 20120502
  Transmission Date: 20120825
  Serious: Yes (Hospitalization, Disabling)
  Sender: FDA-Public Use
  Company Number: FR-GLAXOSMITHKLINE-B0799226A

PATIENT
  Sex: Male
  Weight: 75 kg

DRUGS (7)
  1. LANTUS [Concomitant]
     Route: 065
  2. ACENOCOUMAROL [Concomitant]
     Route: 065
  3. VALSARTAN [Concomitant]
     Dosage: 80MG IN THE MORNING
     Route: 048
  4. SECTRAL [Concomitant]
     Dosage: 200MG IN THE MORNING
     Route: 048
  5. LAMIVUDINE [Suspect]
     Indication: HEPATITIS B
     Dosage: 100MG PER DAY
     Route: 048
     Dates: start: 20030101, end: 20120325
  6. HEPSERA [Suspect]
     Indication: HEPATITIS B
     Dosage: 10MG IN THE MORNING
     Route: 048
     Dates: start: 20040101, end: 20120325
  7. CALCIDOSE VIT D [Concomitant]
     Route: 065

REACTIONS (7)
  - MULTIPLE FRACTURES [None]
  - BONE DISORDER [None]
  - BEDRIDDEN [None]
  - MOVEMENT DISORDER [None]
  - RENAL TUBULAR DISORDER [None]
  - BLOOD PHOSPHORUS DECREASED [None]
  - BONE PAIN [None]
